FAERS Safety Report 9031936 (Version 1)
Quarter: 2013Q1

REPORT INFORMATION
  Report Type: Spontaneous
  Country: JP (occurrence: JP)
  Receive Date: 20130125
  Receipt Date: 20130125
  Transmission Date: 20140127
  Serious: Yes (Other)
  Sender: FDA-Public Use
  Company Number: JP-PFIZER INC-2013030739

PATIENT
  Age: 6 Decade
  Sex: Male

DRUGS (1)
  1. CADUET [Suspect]
     Dosage: 1 TABLET DAILY
     Route: 048

REACTIONS (2)
  - Haemorrhage subcutaneous [Unknown]
  - Purpura [Unknown]
